FAERS Safety Report 9067529 (Version 2)
Quarter: 2013Q1

REPORT INFORMATION
  Report Type: Report from Study
  Country: GB (occurrence: GB)
  Receive Date: 20130128
  Receipt Date: 20130225
  Transmission Date: 20140127
  Serious: Yes (Hospitalization)
  Sender: FDA-Public Use
  Company Number: GB-MERCK-1301GBR003629

PATIENT
  Age: 71 Year
  Sex: Female

DRUGS (2)
  1. VORINOSTAT [Suspect]
     Indication: PLASMA CELL MYELOMA
     Dosage: 300 MG DAYS 1-7 AND 15-21 OF 29 DAY
     Route: 048
     Dates: start: 20121102, end: 20121206
  2. LENALIDOMIDE [Suspect]
     Indication: PLASMA CELL MYELOMA
     Dosage: 10 MG DAYS 1-21 OF 28 DAY CYCLE
     Route: 048
     Dates: start: 20121102, end: 20130114

REACTIONS (2)
  - Urinary tract infection [Recovered/Resolved with Sequelae]
  - Varicella [Recovered/Resolved]
